FAERS Safety Report 14964003 (Version 2)
Quarter: 2018Q2

REPORT INFORMATION
  Report Type: Spontaneous
  Country: US (occurrence: US)
  Receive Date: 20180601
  Receipt Date: 20180619
  Transmission Date: 20180711
  Serious: Yes (Other)
  Sender: FDA-Public Use
  Company Number: US-GLENMARK PHARMACEUTICALS-2018GMK035840

PATIENT
  Age: 67 Year
  Sex: Male

DRUGS (10)
  1. AMPHOTERICIN B. [Suspect]
     Active Substance: AMPHOTERICIN B
     Indication: KERATITIS FUNGAL
     Dosage: 5 MG/ML, HOURLY
     Route: 061
  2. AMPHOTERICIN B. [Suspect]
     Active Substance: AMPHOTERICIN B
     Indication: CANDIDA INFECTION
     Dosage: 5 ?G, UNK, INTRASTROMAL AND INTRACAMERAL ROUTE
     Route: 050
  3. VORICONAZOLE. [Suspect]
     Active Substance: VORICONAZOLE
     Indication: CANDIDA INFECTION
     Dosage: 100 ?G, UNK, INTRASTROMAL AND INTRACAMERAL ROUTE
     Route: 050
  4. VORICONAZOLE. [Suspect]
     Active Substance: VORICONAZOLE
     Indication: KERATITIS FUNGAL
     Dosage: 10 MG/ML, UNK
     Route: 061
  5. VORICONAZOLE. [Suspect]
     Active Substance: VORICONAZOLE
     Indication: CANDIDA ENDOPHTHALMITIS
     Dosage: 100 ?G, INTRASTROMAL AND INTRACAMERAL ROUTE 2 -3 TIMES A WEEK
  6. AMPHOTERICIN B. [Suspect]
     Active Substance: AMPHOTERICIN B
     Indication: CANDIDA ENDOPHTHALMITIS
  7. AMPHOTERICIN B. [Suspect]
     Active Substance: AMPHOTERICIN B
     Dosage: 5 ?G, UNK, INTRASTROMAL AND INTRACAMERAL ROUTE 2 -3 TIMES A WEEK
     Route: 050
  8. AMPHOTERICIN B. [Suspect]
     Active Substance: AMPHOTERICIN B
     Dosage: 5 ?G, UNK, INTRAVITREAL
     Route: 050
  9. AMPHOTERICIN B. [Suspect]
     Active Substance: AMPHOTERICIN B
     Indication: CANDIDA INFECTION
     Dosage: 5 MG/ML, HOURLY
     Route: 065
  10. AMPHOTERICIN B. [Suspect]
     Active Substance: AMPHOTERICIN B
     Indication: RETINAL INFILTRATES

REACTIONS (1)
  - Treatment failure [Unknown]
